FAERS Safety Report 6247175-X (Version None)
Quarter: 2009Q2

REPORT INFORMATION
  Report Type: 
  Country: None (occurrence: None)
  Receive Date: 20090624
  Receipt Date: 20090624
  Transmission Date: 20091009
  Serious: No
  Sender: FDA-Public Use
  Company Number: None

PATIENT
  Age: 61 Year
  Sex: Male
  Weight: 77.1115 kg

DRUGS (2)
  1. LAVAZA 1 GM CAPSULE GLAXOSMITHKLINE [Suspect]
     Indication: BLOOD TRIGLYCERIDES INCREASED
     Dosage: 2 CAPSULES TWICE A DAY PO
     Route: 048
     Dates: start: 20090610, end: 20090611
  2. LAVAZA 1 GM CAPSULE GLAXOSMITHKLINE [Suspect]
     Indication: HIGH DENSITY LIPOPROTEIN DECREASED
     Dosage: 2 CAPSULES TWICE A DAY PO
     Route: 048
     Dates: start: 20090610, end: 20090611

REACTIONS (6)
  - DRUG HYPERSENSITIVITY [None]
  - FEELING ABNORMAL [None]
  - HYPOAESTHESIA [None]
  - INCORRECT DOSE ADMINISTERED [None]
  - PARAESTHESIA [None]
  - TREATMENT NONCOMPLIANCE [None]
